FAERS Safety Report 16786555 (Version 3)
Quarter: 2019Q4

REPORT INFORMATION
  Report Type: Spontaneous
  Country: US (occurrence: US)
  Receive Date: 20190909
  Receipt Date: 20191106
  Transmission Date: 20200122
  Serious: Yes (Hospitalization, Other)
  Sender: FDA-Public Use
  Company Number: US-PFIZER INC-2019385283

PATIENT
  Age: 86 Year
  Sex: Female
  Weight: 72.57 kg

DRUGS (3)
  1. ADVIL [Suspect]
     Active Substance: IBUPROFEN
     Indication: SLEEP DISORDER
     Dosage: UNK
  2. ADVIL [Suspect]
     Active Substance: IBUPROFEN
     Indication: FEELING OF RELAXATION
     Dosage: 400 MG, 1X/DAY (200 MG 2 AT NIGHT BEFORE BED )
     Dates: start: 2017, end: 20190829
  3. BABY ASPIRIN [Concomitant]
     Active Substance: ASPIRIN
     Indication: CARDIAC DISORDER
     Dosage: UNK

REACTIONS (6)
  - Body height decreased [Unknown]
  - Gastric ulcer haemorrhage [Recovered/Resolved]
  - Macular degeneration [Unknown]
  - Intentional product misuse [Unknown]
  - Asthenia [Unknown]
  - Dizziness [Unknown]

NARRATIVE: CASE EVENT DATE: 20190830
